FAERS Safety Report 18811551 (Version 1)
Quarter: 2021Q1

REPORT INFORMATION
  Report Type: Spontaneous
  Country: US (occurrence: US)
  Receive Date: 20210130
  Receipt Date: 20210130
  Transmission Date: 20210419
  Serious: No
  Sender: FDA-Public Use
  Company Number: US-DRREDDYS-USA/USA/21/0131262

PATIENT
  Age: 60 Year
  Sex: Female
  Weight: 72.57 kg

DRUGS (1)
  1. HABITROL [Suspect]
     Active Substance: NICOTINE
     Indication: TOBACCO USER
     Route: 062

REACTIONS (4)
  - Application site irritation [Unknown]
  - Product quality issue [Unknown]
  - Nicotine dependence [Unknown]
  - Drug ineffective [Unknown]
